FAERS Safety Report 6467065-7 (Version None)
Quarter: 2009Q4

REPORT INFORMATION
  Report Type: 
  Country: None (occurrence: None)
  Receive Date: 20091202
  Receipt Date: 20091119
  Transmission Date: 20100525
  Serious: Yes (Other)
  Sender: FDA-Public Use
  Company Number: TH-PFIZER INC-2009299770

PATIENT
  Age: 33 Year
  Sex: Female

DRUGS (6)
  1. ZELDOX [Suspect]
     Dosage: 40 MG, 1X/DAY
     Route: 048
     Dates: start: 20091102, end: 20091114
  2. SULIDINE [Suspect]
     Indication: HYPERSENSITIVITY
     Dosage: 1 DF, 1X/DAY
     Route: 048
     Dates: start: 20091115, end: 20091115
  3. PSEUDOEPHEDRINE HCL [Suspect]
     Indication: HYPERSENSITIVITY
     Dosage: UNK
     Dates: start: 20091115
  4. CLORAZEPATE DIPOTASSIUM [Concomitant]
     Dosage: 5 MG, 1X/DAY
     Route: 048
     Dates: start: 20091102, end: 20091114
  5. PROPRANOLOL [Concomitant]
     Dosage: 10 MG, 2X/DAY
     Route: 048
     Dates: start: 20091102, end: 20091114
  6. LEXAPRO [Concomitant]
     Dosage: 10 MG, 1X/DAY
     Route: 048
     Dates: start: 20091102, end: 20091114

REACTIONS (8)
  - ELECTROCARDIOGRAM ABNORMAL [None]
  - HYPOAESTHESIA [None]
  - HYPOAESTHESIA FACIAL [None]
  - INSOMNIA [None]
  - MIGRAINE [None]
  - MUSCULAR WEAKNESS [None]
  - PALPITATIONS [None]
  - TREMOR [None]
